FAERS Safety Report 16913499 (Version 1)
Quarter: 2019Q4

REPORT INFORMATION
  Report Type: Spontaneous
  Country: US (occurrence: US)
  Receive Date: 20191014
  Receipt Date: 20191014
  Transmission Date: 20200122
  Serious: Yes (Other)
  Sender: FDA-Public Use
  Company Number: US-SUNOVION-2019SUN004215

PATIENT
  Age: 37 Year
  Sex: Male

DRUGS (2)
  1. LATUDA [Suspect]
     Active Substance: LURASIDONE HYDROCHLORIDE
     Indication: CARDIOMETABOLIC SYNDROME
     Dosage: 40 MG, QD
     Route: 048
  2. OLANZAPINE. [Concomitant]
     Active Substance: OLANZAPINE
     Indication: CARDIOMETABOLIC SYNDROME
     Dosage: 7.5 MG, QD

REACTIONS (2)
  - Off label use [Unknown]
  - Hallucination, auditory [Unknown]
